FAERS Safety Report 20140223 (Version 2)
Quarter: 2022Q1

REPORT INFORMATION
  Report Type: Report from Study
  Country: US (occurrence: US)
  Receive Date: 20211202
  Receipt Date: 20220303
  Transmission Date: 20220423
  Serious: Yes (Hospitalization, Other)
  Sender: FDA-Public Use
  Company Number: US-TAKEDA-US201604639

PATIENT
  Age: 49 Year
  Sex: Female
  Weight: 51 kg

DRUGS (23)
  1. TEDUGLUTIDE [Suspect]
     Active Substance: TEDUGLUTIDE
     Indication: Short-bowel syndrome
     Dosage: 2.8 MG, 1X/DAY:QD
     Route: 058
     Dates: start: 20131020, end: 20150202
  2. TEDUGLUTIDE [Suspect]
     Active Substance: TEDUGLUTIDE
     Indication: Short-bowel syndrome
     Dosage: 2.8 MG, 1X/DAY:QD
     Route: 058
     Dates: start: 20131020, end: 20150202
  3. TEDUGLUTIDE [Suspect]
     Active Substance: TEDUGLUTIDE
     Indication: Short-bowel syndrome
     Dosage: 2.8 MG, 1X/DAY:QD
     Route: 058
     Dates: start: 20131020, end: 20150202
  4. TEDUGLUTIDE [Suspect]
     Active Substance: TEDUGLUTIDE
     Indication: Short-bowel syndrome
     Dosage: 2.8 MG, 1X/DAY:QD
     Route: 058
     Dates: start: 20131020, end: 20150202
  5. TEDUGLUTIDE [Suspect]
     Active Substance: TEDUGLUTIDE
     Dosage: 2.8 MILLIGRAM, QD
     Route: 058
     Dates: start: 20150202
  6. TEDUGLUTIDE [Suspect]
     Active Substance: TEDUGLUTIDE
     Dosage: 2.8 MILLIGRAM, QD
     Route: 058
     Dates: start: 20150202
  7. TEDUGLUTIDE [Suspect]
     Active Substance: TEDUGLUTIDE
     Dosage: 2.8 MILLIGRAM, QD
     Route: 058
     Dates: start: 20150202
  8. TEDUGLUTIDE [Suspect]
     Active Substance: TEDUGLUTIDE
     Dosage: 2.8 MILLIGRAM, QD
     Route: 058
     Dates: start: 20150202
  9. TEDUGLUTIDE [Suspect]
     Active Substance: TEDUGLUTIDE
     Dosage: 2.8 MILLIGRAM, QD
     Route: 058
     Dates: start: 20150203, end: 201511
  10. TEDUGLUTIDE [Suspect]
     Active Substance: TEDUGLUTIDE
     Dosage: 2.8 MILLIGRAM, QD
     Route: 058
     Dates: start: 20150203, end: 201511
  11. TEDUGLUTIDE [Suspect]
     Active Substance: TEDUGLUTIDE
     Dosage: 2.8 MILLIGRAM, QD
     Route: 058
     Dates: start: 20150203, end: 201511
  12. TEDUGLUTIDE [Suspect]
     Active Substance: TEDUGLUTIDE
     Dosage: 2.8 MILLIGRAM, QD
     Route: 058
     Dates: start: 20150203, end: 201511
  13. TPN [Concomitant]
     Active Substance: AMINO ACIDS\DEXTROSE\ELECTROLYTES NOS\SOYBEAN OIL
     Indication: Nutritional supplementation
     Dosage: 3 L, 2 DAYS PER WEEK
     Route: 051
     Dates: start: 20150110
  14. TPN [Concomitant]
     Active Substance: AMINO ACIDS\DEXTROSE\ELECTROLYTES NOS\SOYBEAN OIL
     Dosage: UNK UNK, UNKNOWN
     Route: 051
     Dates: start: 2008
  15. KETAMINE HYDROCHLORIDE [Concomitant]
     Active Substance: KETAMINE HYDROCHLORIDE
     Indication: Pain
     Dosage: 100 DF, 1X/DAY:QD
     Route: 061
     Dates: start: 20140711
  16. DIETARY SUPPLEMENT\HERBALS\MILK THISTLE [Concomitant]
     Active Substance: DIETARY SUPPLEMENT\HERBALS\MILK THISTLE
     Indication: Phytotherapy
     Dosage: UNK, 1X/DAY:QD
     Route: 048
     Dates: start: 20140711
  17. MULTIVITAMIN                       /00097801/ [Concomitant]
     Indication: Prophylaxis
     Dosage: UNK, 1X/DAY:QD
     Route: 048
     Dates: start: 20140711
  18. PREVACID [Concomitant]
     Active Substance: LANSOPRAZOLE
     Indication: Gastrooesophageal reflux disease
     Dosage: 30 MG, 1X/DAY:QD
     Route: 048
     Dates: start: 20130124
  19. URSODIOL [Concomitant]
     Active Substance: URSODIOL
     Indication: Liver disorder
     Dosage: 500 MG, 2X/DAY:BID
     Route: 048
     Dates: start: 20140711, end: 20150202
  20. LIDOCAINE [Concomitant]
     Active Substance: LIDOCAINE
     Indication: Hepatic encephalopathy
     Dosage: UNK UNK, QD
     Dates: start: 20200902, end: 20200902
  21. ASPIRIN [Concomitant]
     Active Substance: ASPIRIN
     Indication: Hepatic encephalopathy
     Dosage: 81 MILLIGRAM
     Route: 048
     Dates: start: 20200902, end: 20200902
  22. LEVETIRACETAM [Concomitant]
     Active Substance: LEVETIRACETAM
     Indication: Hepatic encephalopathy
     Dosage: 750 MILLIGRAM, BID
     Route: 048
     Dates: start: 20200902, end: 20200902
  23. TACROLIMUS [Concomitant]
     Active Substance: TACROLIMUS
     Indication: Hepatic encephalopathy
     Dosage: 2 MILLIGRAM, BID
     Route: 048
     Dates: start: 20200902, end: 20200902

REACTIONS (2)
  - Staphylococcal sepsis [Recovered/Resolved]
  - Device related sepsis [Recovered/Resolved]

NARRATIVE: CASE EVENT DATE: 20150202
